FAERS Safety Report 5027137-0 (Version None)
Quarter: 2006Q2

REPORT INFORMATION
  Report Type: 
  Country: None (occurrence: None)
  Receive Date: 20060615
  Receipt Date: 20060207
  Transmission Date: 20061013
  Serious: Yes (Life-Threatening)
  Sender: FDA-Public Use
  Company Number: JP-SANOFI-SYNTHELABO-A01200601095

PATIENT
  Sex: Male
  Weight: 63 kg

DRUGS (8)
  1. DEXAMETHASONE SODIUM PHOSPHATE [Concomitant]
     Route: 042
     Dates: start: 20060105, end: 20060202
  2. GRANISETRON HYDROCHLORIDE [Concomitant]
     Route: 042
     Dates: start: 20060105, end: 20060202
  3. FLUID REPLACEMENT [Concomitant]
     Route: 042
     Dates: start: 20060205, end: 20060213
  4. NOREPINEPHRINE [Concomitant]
     Route: 042
     Dates: start: 20060205, end: 20060213
  5. DOPAMINE HCL [Concomitant]
     Route: 042
     Dates: start: 20060205, end: 20060213
  6. FLUOROURACIL [Suspect]
     Indication: COLON CANCER
     Dosage: 600MG/BODY=352.9MG/M2 IN BOLUS THEN 900MG/BODY=529.4MG/M2 IN CONTINUOUS INFUSION
     Route: 042
     Dates: start: 20060202, end: 20060203
  7. LEUCOVORIN CALCIUM [Suspect]
     Indication: COLON CANCER
     Route: 042
     Dates: start: 20060202, end: 20060203
  8. OXALIPLATIN [Suspect]
     Indication: COLON CANCER
     Route: 042
     Dates: start: 20060202, end: 20060202

REACTIONS (4)
  - DIARRHOEA [None]
  - HAEMOGLOBIN DECREASED [None]
  - RENAL IMPAIRMENT [None]
  - SHOCK [None]
